FAERS Safety Report 5322386-6 (Version None)
Quarter: 2007Q2

REPORT INFORMATION
  Report Type: 
  Country: None (occurrence: None)
  Receive Date: 20070511
  Receipt Date: 20070502
  Transmission Date: 20071010
  Serious: Yes (Hospitalization, Other)
  Sender: FDA-Public Use
  Company Number: US-ELI_LILLY_AND_COMPANY-US200705000700

PATIENT
  Age: 69 Year
  Sex: Female

DRUGS (4)
  1. FORTEO [Suspect]
     Dosage: UNK, UNK
     Dates: start: 20060501
  2. HALDOL /SCH/ [Concomitant]
  3. RISPERDAL [Concomitant]
  4. LIBRAX [Concomitant]
     Indication: PAIN

REACTIONS (8)
  - BALANCE DISORDER [None]
  - CONVULSION [None]
  - FALL [None]
  - FEELING HOT [None]
  - INJECTION SITE COLDNESS [None]
  - MALAISE [None]
  - MEMORY IMPAIRMENT [None]
  - SOMNOLENCE [None]
